FAERS Safety Report 15647909 (Version 3)
Quarter: 2019Q3

REPORT INFORMATION
  Report Type: Spontaneous
  Country: US (occurrence: US)
  Receive Date: 20181122
  Receipt Date: 20190912
  Transmission Date: 20191004
  Serious: No
  Sender: FDA-Public Use
  Company Number: US-SA-2018SA319321

PATIENT
  Age: 55 Year
  Sex: Male
  Weight: 83.9 kg

DRUGS (24)
  1. NORMAL SALINE [Concomitant]
     Active Substance: SODIUM CHLORIDE
     Indication: DRUG THERAPY
     Dosage: 0.9 %, UNK
     Route: 042
     Dates: start: 20171025
  2. STERILE WATER [Concomitant]
     Active Substance: WATER
     Dosage: 1 EACH
     Route: 042
     Dates: start: 20190321
  3. CALCIUM [Concomitant]
     Active Substance: CALCIUM
     Dosage: 1 DF, QD
     Route: 048
     Dates: start: 20170802
  4. DIPHENHYDRAMINE. [Concomitant]
     Active Substance: DIPHENHYDRAMINE
     Dosage: 25 MG, PRN
     Route: 048
     Dates: start: 20190321
  5. STERILE WATER [Concomitant]
     Active Substance: WATER
     Indication: DRUG THERAPY
     Dosage: 1 DF, UNK
     Route: 042
     Dates: start: 20171025
  6. EPINEPHRINE. [Concomitant]
     Active Substance: EPINEPHRINE
     Dosage: 0.3 MG, PRN
     Route: 030
     Dates: start: 20190321
  7. ALBUTEROL [SALBUTAMOL] [Concomitant]
     Active Substance: ALBUTEROL
     Dosage: 1 DF, Q4H
     Route: 055
     Dates: start: 20171018
  8. SODIUM CHLORIDE. [Concomitant]
     Active Substance: SODIUM CHLORIDE
     Indication: DRUG THERAPY
     Dosage: 0.9 %, UNK
     Route: 065
     Dates: start: 20171025
  9. EPINEPHRINE. [Concomitant]
     Active Substance: EPINEPHRINE
     Indication: ANAPHYLACTIC REACTION
     Dosage: 3 MG, PRN
     Route: 030
     Dates: start: 20171025
  10. COENZYME Q10 [Concomitant]
     Active Substance: UBIDECARENONE
     Dosage: 1 DF, QD
     Route: 048
     Dates: start: 20170802
  11. TRAMADOL. [Concomitant]
     Active Substance: TRAMADOL
     Dosage: 50 MG, BID
     Route: 048
     Dates: start: 20181017
  12. DIPHENHYDRAMINE. [Concomitant]
     Active Substance: DIPHENHYDRAMINE
     Indication: ANAPHYLACTIC REACTION
     Dosage: 25 MG, PRN
     Route: 048
     Dates: start: 20171025
  13. SODIUM CHLORIDE. [Concomitant]
     Active Substance: SODIUM CHLORIDE
     Dosage: 0.9 %; UNK
     Route: 042
     Dates: start: 20190321
  14. CLARITIN-D NOS [Concomitant]
     Active Substance: LORATADINE\PSEUDOEPHEDRINE SULFATE
     Dosage: 1 DF, QD
     Route: 048
     Dates: start: 20171025
  15. XANAX [Concomitant]
     Active Substance: ALPRAZOLAM
     Dosage: 1 DF, QD
     Route: 048
     Dates: start: 20181017
  16. ACETAMINOPHEN. [Concomitant]
     Active Substance: ACETAMINOPHEN
     Indication: PREMEDICATION
     Dosage: 650 MG, UNK
     Route: 065
     Dates: start: 20180619
  17. ACETAMINOPHEN. [Concomitant]
     Active Substance: ACETAMINOPHEN
     Dosage: 650 MG; UNK
     Route: 048
     Dates: start: 20190321
  18. MELATONIN [Concomitant]
     Active Substance: MELATONIN
     Dosage: 1 DF, UNK
     Route: 048
     Dates: start: 20171107
  19. MULTIVITAMINS [VITAMINS NOS] [Concomitant]
     Active Substance: VITAMINS
     Dosage: 1 DF, QD
     Route: 048
     Dates: start: 20170802
  20. LAVENDER OIL [Concomitant]
     Active Substance: LAVENDER OIL
     Dosage: 3 GTTS, QD
     Route: 055
     Dates: start: 20190426
  21. FABRAZYME [Suspect]
     Active Substance: AGALSIDASE BETA
     Indication: FABRY^S DISEASE
     Dosage: 85 MG, QOW
     Route: 041
     Dates: start: 20170803
  22. NORMAL SALINE [Concomitant]
     Active Substance: SODIUM CHLORIDE
     Dosage: 0.9 %; UNK
     Route: 042
     Dates: start: 20190321
  23. VENTOLIN HFA [Concomitant]
     Active Substance: ALBUTEROL SULFATE
     Dosage: 2 PUFF, BID
     Route: 065
     Dates: start: 20171025
  24. FISH OIL [Concomitant]
     Active Substance: FISH OIL
     Dosage: 1 DF, QD
     Route: 048
     Dates: start: 20170802

REACTIONS (7)
  - Erythema [Recovering/Resolving]
  - Fatigue [Unknown]
  - Anxiety [Recovered/Resolved]
  - Sinusitis [Unknown]
  - Feeling abnormal [Recovered/Resolved]
  - Blood pressure increased [Recovered/Resolved]
  - Hypertension [Unknown]

NARRATIVE: CASE EVENT DATE: 20181031
